FAERS Safety Report 9591711 (Version 2)
Quarter: 2013Q4

REPORT INFORMATION
  Report Type: Spontaneous
  Country: US (occurrence: US)
  Receive Date: 20131004
  Receipt Date: 20131004
  Transmission Date: 20140711
  Serious: No
  Sender: FDA-Public Use
  Company Number: US-AMGEN-USASP2012082996

PATIENT
  Age: 60 Year
  Sex: Female

DRUGS (3)
  1. ENBREL [Suspect]
     Indication: RHEUMATOID ARTHRITIS
     Dosage: 50 MG, QWK
     Dates: start: 20100101, end: 20121207
  2. METHOTREXATE [Concomitant]
     Dosage: 25 MG, QWK
     Dates: start: 2004
  3. REMICADE [Concomitant]
     Dosage: UNK
     Dates: start: 2011

REACTIONS (5)
  - Blister [Not Recovered/Not Resolved]
  - Pain in extremity [Recovered/Resolved]
  - Mobility decreased [Recovered/Resolved]
  - Psoriasis [Not Recovered/Not Resolved]
  - Impetigo [Not Recovered/Not Resolved]
